FAERS Safety Report 9856450 (Version 1)
Quarter: 2014Q1

REPORT INFORMATION
  Report Type: Spontaneous
  Country: DE (occurrence: DE)
  Receive Date: 20140130
  Receipt Date: 20140130
  Transmission Date: 20141002
  Serious: Yes (Death, Other)
  Sender: FDA-Public Use
  Company Number: DE-JNJFOC-20140113283

PATIENT
  Sex: 0

DRUGS (8)
  1. DOXORUBICIN HYDROCHLORIDE [Suspect]
     Indication: CLEAR CELL SARCOMA OF THE KIDNEY
     Dosage: 2 X 50 MG/M2 FOR 6 WEEKS
     Route: 042
  2. VINCRISTINE [Suspect]
     Indication: CLEAR CELL SARCOMA OF THE KIDNEY
     Route: 065
  3. DACTINOMYCIN [Suspect]
     Indication: CLEAR CELL SARCOMA OF THE KIDNEY
     Dosage: 5 X 15 UG/KG IN SIOP 93-01 AND 1 X 45 UG/KG IN SIOP 2001
     Route: 065
  4. EPIRUBICIN [Suspect]
     Indication: CLEAR CELL SARCOMA OF THE KIDNEY
     Dosage: 2 X 50 MG/M2 FOR 6 WEEKS
     Route: 065
  5. ACTINOMYCINES [Suspect]
     Indication: CLEAR CELL SARCOMA OF THE KIDNEY
     Route: 065
  6. IFOSFAMIDE [Suspect]
     Indication: CLEAR CELL SARCOMA OF THE KIDNEY
     Route: 065
  7. CYCLOPHOSPHAMIDE [Suspect]
     Indication: CLEAR CELL SARCOMA OF THE KIDNEY
     Route: 065
  8. RADIOTHERAPY [Suspect]
     Indication: CLEAR CELL SARCOMA OF THE KIDNEY
     Route: 065

REACTIONS (6)
  - Clear cell sarcoma of the kidney [Fatal]
  - Cardiomyopathy [Fatal]
  - Clear cell sarcoma of the kidney [Fatal]
  - Septic shock [Fatal]
  - Toxicity to various agents [Fatal]
  - Off label use [Unknown]
